FAERS Safety Report 16162497 (Version 1)
Quarter: 2019Q2

REPORT INFORMATION
  Report Type: Spontaneous
  Country: JP (occurrence: JP)
  Receive Date: 20190405
  Receipt Date: 20190405
  Transmission Date: 20190711
  Serious: Yes (Other)
  Sender: FDA-Public Use
  Company Number: JP-MICRO LABS LIMITED-ML2019-00828

PATIENT
  Age: 78 Year
  Sex: Male

DRUGS (4)
  1. PIROXICAM CAPSULES USP, 10 MG [Suspect]
     Active Substance: PIROXICAM
  2. TEPRENONE [Suspect]
     Active Substance: TEPRENONE
  3. MEFENAMIC ACID 250 MG CAPSULES [Suspect]
     Active Substance: MEFENAMIC ACID
  4. LEVOFLOXACIN. [Suspect]
     Active Substance: LEVOFLOXACIN

REACTIONS (1)
  - Stevens-Johnson syndrome [Unknown]
